FAERS Safety Report 6719214-0 (Version None)
Quarter: 2010Q2

REPORT INFORMATION
  Report Type: 
  Country: None (occurrence: None)
  Receive Date: 20100510
  Receipt Date: 20100510
  Transmission Date: 20101027
  Serious: No
  Sender: FDA-Public Use
  Company Number: None

PATIENT
  Sex: Female
  Weight: 78.6 kg

DRUGS (1)
  1. ZOMETA [Suspect]
     Dosage: 32 MG
     Dates: end: 20091228

REACTIONS (1)
  - JAW OPERATION [None]
